FAERS Safety Report 5848109-X (Version None)
Quarter: 2008Q3

REPORT INFORMATION
  Report Type: 
  Country: None (occurrence: None)
  Receive Date: 20080814
  Receipt Date: 20080804
  Transmission Date: 20090109
  Serious: Yes (Hospitalization)
  Sender: FDA-Public Use
  Company Number: 2008-02573

PATIENT
  Age: 40 Year
  Sex: Male
  Weight: 92 kg

DRUGS (3)
  1. VELCADE [Suspect]
     Indication: MULTIPLE MYELOMA
     Dosage: 2.4MG
     Dates: start: 20080414, end: 20080516
  2. DEXAMETHASONE TAB [Suspect]
     Indication: MULTIPLE MYELOMA
     Dosage: 40MG, ORAL
     Route: 048
     Dates: start: 20080414, end: 20080516
  3. DOXORUBICIN HCL [Concomitant]

REACTIONS (1)
  - LUNG INFECTION [None]
